FAERS Safety Report 16831517 (Version 3)
Quarter: 2020Q4

REPORT INFORMATION
  Report Type: Report from Study
  Country: FR (occurrence: FR)
  Receive Date: 20190920
  Receipt Date: 20201208
  Transmission Date: 20210113
  Serious: Yes (Hospitalization, Other)
  Sender: FDA-Public Use
  Company Number: FR-ROCHE-2405425

PATIENT
  Age: 73 Year
  Sex: Female
  Weight: 52 kg

DRUGS (22)
  1. OBINUTUZUMAB. [Suspect]
     Active Substance: OBINUTUZUMAB
     Route: 042
     Dates: start: 20190925
  2. ZELITREX [Concomitant]
     Active Substance: VALACYCLOVIR HYDROCHLORIDE
  3. RO7082859 (CD20/C3 T-CELL BISPECIFIC MAB) [Suspect]
     Active Substance: GLOFITAMAB
     Dosage: AT 19:15
     Route: 042
     Dates: start: 20190717
  4. OBINUTUZUMAB. [Suspect]
     Active Substance: OBINUTUZUMAB
     Dosage: AT 15:20
     Route: 042
     Dates: start: 20190625
  5. RO7082859 (CD20/C3 T-CELL BISPECIFIC MAB) [Suspect]
     Active Substance: GLOFITAMAB
     Dosage: AT 00:10
     Route: 042
     Dates: start: 20190515
  6. INNOVAIR [Concomitant]
     Active Substance: BECLOMETHASONE DIPROPIONATE\FORMOTEROL
  7. RO7082859 (CD20/C3 T-CELL BISPECIFIC MAB) [Suspect]
     Active Substance: GLOFITAMAB
     Dosage: AT 21:30
     Route: 042
     Dates: start: 20190402
  8. RO7082859 (CD20/C3 T-CELL BISPECIFIC MAB) [Suspect]
     Active Substance: GLOFITAMAB
     Dosage: AT 20:30
     Route: 042
     Dates: start: 20190625
  9. RO7082859 (CD20/C3 T-CELL BISPECIFIC MAB) [Suspect]
     Active Substance: GLOFITAMAB
     Route: 042
     Dates: start: 20191204
  10. OBINUTUZUMAB. [Suspect]
     Active Substance: OBINUTUZUMAB
     Dosage: AT 15:30
     Route: 042
     Dates: start: 20190402
  11. OBINUTUZUMAB. [Suspect]
     Active Substance: OBINUTUZUMAB
     Dosage: AT 15:45
     Route: 042
     Dates: start: 20190423
  12. OBINUTUZUMAB. [Suspect]
     Active Substance: OBINUTUZUMAB
     Dosage: AT 18:15
     Route: 042
     Dates: start: 20190514
  13. TOCILIZUMAB. [Suspect]
     Active Substance: TOCILIZUMAB
     Indication: NON-HODGKIN^S LYMPHOMA
     Route: 065
  14. RO7082859 (CD20/C3 T-CELL BISPECIFIC MAB) [Suspect]
     Active Substance: GLOFITAMAB
     Dosage: AT 21:40
     Route: 042
     Dates: start: 20190423
  15. OBINUTUZUMAB. [Suspect]
     Active Substance: OBINUTUZUMAB
     Dosage: AT 13:20
     Route: 042
     Dates: start: 20190604
  16. OBINUTUZUMAB. [Suspect]
     Active Substance: OBINUTUZUMAB
     Dosage: AT 13:45
     Route: 042
     Dates: start: 20190717
  17. OBINUTUZUMAB. [Suspect]
     Active Substance: OBINUTUZUMAB
     Dosage: AT 13:10
     Route: 042
     Dates: start: 20190806
  18. TUSSIDANE [Concomitant]
     Active Substance: DEXTROMETHORPHAN HYDROBROMIDE
  19. RO7082859 (CD20/C3 T-CELL BISPECIFIC MAB) [Suspect]
     Active Substance: GLOFITAMAB
     Dosage: AT 19:10
     Route: 042
     Dates: start: 20190604
  20. RO7082859 (CD20/C3 T-CELL BISPECIFIC MAB) [Suspect]
     Active Substance: GLOFITAMAB
     Indication: NON-HODGKIN^S LYMPHOMA
     Dosage: AT 13:10
     Route: 042
     Dates: start: 20190319
  21. RO7082859 (CD20/C3 T-CELL BISPECIFIC MAB) [Suspect]
     Active Substance: GLOFITAMAB
     Dosage: AT 19:10
     Route: 042
     Dates: start: 20190806
  22. OBINUTUZUMAB. [Suspect]
     Active Substance: OBINUTUZUMAB
     Indication: NON-HODGKIN^S LYMPHOMA
     Dosage: CYCLE 1 DAY 7 AT 19:45
     Route: 042
     Dates: start: 20190312

REACTIONS (2)
  - Pulmonary embolism [Recovered/Resolved]
  - Lung disorder [Not Recovered/Not Resolved]

NARRATIVE: CASE EVENT DATE: 20190906
